FAERS Safety Report 6880743-0 (Version None)
Quarter: 2010Q3

REPORT INFORMATION
  Report Type: 
  Country: None (occurrence: None)
  Receive Date: 20100728
  Receipt Date: 20100719
  Transmission Date: 20110219
  Serious: Yes (Hospitalization)
  Sender: FDA-Public Use
  Company Number: DE-SHIRE-SPV1-2010-01259

PATIENT
  Age: 14 Month
  Sex: Female
  Weight: 9.5 kg

DRUGS (1)
  1. EQUASYM RETARD [Suspect]
     Dosage: 2.25 DF, ONE DOSE
     Route: 048
     Dates: start: 20100711, end: 20100711

REACTIONS (1)
  - ACCIDENTAL EXPOSURE [None]
